FAERS Safety Report 13298237 (Version 2)
Quarter: 2017Q3

REPORT INFORMATION
  Report Type: Report from Study
  Country: BE (occurrence: BE)
  Receive Date: 20170306
  Receipt Date: 20170914
  Transmission Date: 20171127
  Serious: Yes (Other)
  Sender: FDA-Public Use
  Company Number: BE-SA-2017SA036115

PATIENT
  Age: 44 Year
  Sex: Male

DRUGS (1)
  1. LEMTRADA [Suspect]
     Active Substance: ALEMTUZUMAB
     Indication: MULTIPLE SCLEROSIS
     Route: 042

REACTIONS (4)
  - Hypoaesthesia [Unknown]
  - Dysphonia [Unknown]
  - Visual impairment [Unknown]
  - Fine motor skill dysfunction [Unknown]
